FAERS Safety Report 5190756-5 (Version None)
Quarter: 2006Q4

REPORT INFORMATION
  Report Type: 
  Country: None (occurrence: None)
  Receive Date: 20061222
  Receipt Date: 20061218
  Transmission Date: 20070319
  Serious: Yes (Death, Hospitalization)
  Sender: FDA-Public Use
  Company Number: US-BRISTOL-MYERS SQUIBB COMPANY-13616354

PATIENT
  Age: 58 Year
  Sex: Female

DRUGS (2)
  1. CARBOPLATIN [Suspect]
     Indication: OVARIAN CANCER
     Dates: start: 20061103, end: 20061103
  2. TAXOL [Suspect]
     Indication: OVARIAN CANCER
     Dates: start: 20061103, end: 20061103

REACTIONS (2)
  - DEATH [None]
  - GASTROINTESTINAL OBSTRUCTION [None]
